FAERS Safety Report 4775891-5 (Version None)
Quarter: 2005Q3

REPORT INFORMATION
  Report Type: 
  Country: None (occurrence: None)
  Receive Date: 20050914
  Receipt Date: 20050328
  Transmission Date: 20060218
  Serious: Yes (Hospitalization)
  Sender: FDA-Public Use
  Company Number: 163-20785-05030726 (0)

PATIENT
  Age: 68 Year
  Sex: Female

DRUGS (2)
  1. THALOMID [Suspect]
     Indication: NON-SMALL CELL LUNG CANCER
     Dosage: 200 MG, QHS, ORAL
     Route: 048
     Dates: start: 20050125, end: 20050301
  2. TAXOTERE [Suspect]
     Indication: NON-SMALL CELL LUNG CANCER
     Dosage: 30MG/M^2, DAY 1, 8, 15 Q28 D
     Dates: start: 20050125, end: 20050301

REACTIONS (3)
  - INFECTION [None]
  - INFLUENZA [None]
  - PNEUMONIA [None]
